FAERS Safety Report 19476677 (Version 1)
Quarter: 2021Q2

REPORT INFORMATION
  Report Type: Spontaneous
  Country: US (occurrence: US)
  Receive Date: 20210630
  Receipt Date: 20210630
  Transmission Date: 20210717
  Serious: Yes (Death, Life-Threatening, Hospitalization, Other)
  Sender: FDA-Public Use
  Company Number: US-BRACCO-2021US02455

PATIENT
  Age: 57 Year
  Sex: Female

DRUGS (3)
  1. LUMASON [Suspect]
     Active Substance: SULFUR HEXAFLUORIDE
     Indication: ECHOCARDIOGRAM
     Dosage: 2 ML, SINGLE
     Dates: start: 20210609, end: 20210609
  2. LUMASON [Suspect]
     Active Substance: SULFUR HEXAFLUORIDE
     Indication: ECHOCARDIOGRAM
     Dosage: 2 ML, SINGLE
     Dates: start: 20210609, end: 20210609
  3. LUMASON [Suspect]
     Active Substance: SULFUR HEXAFLUORIDE
     Indication: ECHOCARDIOGRAM
     Dosage: 2 ML, SINGLE
     Dates: start: 20210609, end: 20210609

REACTIONS (3)
  - Burning sensation [Unknown]
  - Cardio-respiratory arrest [Unknown]
  - Abdominal pain [Unknown]

NARRATIVE: CASE EVENT DATE: 20210609
